FAERS Safety Report 8782515 (Version 1)
Quarter: 2012Q4

REPORT INFORMATION
  Report Type: 
  Country: US (occurrence: US)
  Receive Date: 20120913
  Receipt Date: 20120913
  Transmission Date: 20130627
  Serious: Yes (Other)
  Sender: FDA-Public Use
  Company Number: US-VERTEX PHARMACEUTICAL INC.-AE-2012-010134

PATIENT
  Age: 64 Year
  Sex: Male
  Weight: 48.98 kg

DRUGS (6)
  1. VX-950 [Suspect]
     Indication: HEPATITIS C
     Dosage: 750 mg, tid
     Route: 048
     Dates: start: 20120528
  2. PEGASYS [Concomitant]
     Indication: HEPATITIS C
     Dosage: UNK
  3. PEGASYS [Concomitant]
     Dosage: 135 ?g, UNK
     Route: 058
     Dates: start: 20120709
  4. RIBAVIRIN [Concomitant]
     Indication: HEPATITIS C
     Dosage: 200 mg, UNK
  5. LISINOPRIL AND HYDROCHLOROTHIAZIDE [Concomitant]
  6. OMEGA-3                            /01168901/ [Concomitant]

REACTIONS (4)
  - Anaemia [Unknown]
  - White blood cell count decreased [Unknown]
  - Lethargy [Unknown]
  - Platelet count decreased [Unknown]
